FAERS Safety Report 8017564-1 (Version None)
Quarter: 2011Q4

REPORT INFORMATION
  Report Type: 
  Country: None (occurrence: None)
  Receive Date: 20111229
  Receipt Date: 20111229
  Transmission Date: 20120403
  Serious: Yes (Hospitalization)
  Sender: FDA-Public Use
  Company Number: None

PATIENT
  Age: 91 Year
  Sex: Female
  Weight: 82 kg

DRUGS (12)
  1. LASIX [Concomitant]
  2. PLAVIX [Suspect]
     Indication: CORONARY ARTERY DISEASE
     Dosage: 75 MG DAILY PO RECENT RESTART
     Route: 048
  3. CELEBREX [Suspect]
     Dosage: 200MG BID PO PRN
     Route: 048
  4. ASPIRIN [Suspect]
     Indication: CORONARY ARTERY DISEASE
     Dosage: 81MG DAILY PO RECENT RESTART
     Route: 048
  5. CALCIUM + VIT D [Concomitant]
  6. POTASSIUM CHLORIDE [Concomitant]
  7. OMEPRAZOLE [Concomitant]
  8. ALTACE [Concomitant]
  9. LEVEMIR [Concomitant]
  10. COREG [Concomitant]
  11. AMARYL [Concomitant]
  12. ZOCOR [Concomitant]

REACTIONS (3)
  - DIVERTICULUM [None]
  - LOWER GASTROINTESTINAL HAEMORRHAGE [None]
  - HAEMOGLOBIN DECREASED [None]
